FAERS Safety Report 18457325 (Version 2)
Quarter: 2020Q4

REPORT INFORMATION
  Report Type: Spontaneous
  Country: US (occurrence: US)
  Receive Date: 20201030
  Receipt Date: 20201109
  Transmission Date: 20210114
  Serious: No
  Sender: FDA-Public Use
  Company Number: US-GW PHARMA-202010USGW03700

PATIENT

DRUGS (1)
  1. EPIDIOLEX [Suspect]
     Active Substance: CANNABIDIOL
     Indication: IDIOPATHIC GENERALISED EPILEPSY
     Dosage: 110 MILLIGRAM, BID
     Route: 048
     Dates: start: 202009, end: 2020

REACTIONS (3)
  - Diarrhoea [Recovering/Resolving]
  - Seizure [Recovering/Resolving]
  - Product use in unapproved indication [Unknown]

NARRATIVE: CASE EVENT DATE: 202009
